FAERS Safety Report 6383836-X (Version None)
Quarter: 2009Q4

REPORT INFORMATION
  Report Type: 
  Country: None (occurrence: None)
  Receive Date: 20091001
  Receipt Date: 20090831
  Transmission Date: 20100525
  Serious: No
  Sender: FDA-Public Use
  Company Number: US-BAYER-200932150NA

PATIENT
  Age: 28 Year
  Sex: Female
  Weight: 62 kg

DRUGS (4)
  1. MIRENA [Suspect]
     Indication: CONTRACEPTION
     Dosage: CONTINUOUS
     Route: 015
     Dates: start: 20050225
  2. PROMETHAZINE [Concomitant]
  3. KAPTEX [Concomitant]
  4. VITAMIN TAB [Concomitant]

REACTIONS (4)
  - BACK PAIN [None]
  - HEADACHE [None]
  - MEDICAL DEVICE COMPLICATION [None]
  - NAUSEA [None]
